FAERS Safety Report 4278854-1 (Version None)
Quarter: 2004Q1

REPORT INFORMATION
  Report Type: 
  Country: None (occurrence: None)
  Receive Date: 20040122
  Receipt Date: 20040122
  Transmission Date: 20041129
  Serious: Yes (Life-Threatening)
  Sender: FDA-Public Use
  Company Number: None

PATIENT
  Age: 64 Year
  Sex: Male
  Weight: 98 kg

DRUGS (2)
  1. AMIFOSTINE 500 MG [Suspect]
     Indication: RADIOTHERAPY
     Dosage: 250 MG X 2 DOSES SUBCUTANEOUS
     Route: 058
     Dates: start: 20040101, end: 20040119
  2. AMIFOSTINE 500 MG [Suspect]
     Indication: TONSIL CANCER
     Dosage: 250 MG X 2 DOSES SUBCUTANEOUS
     Route: 058
     Dates: start: 20040101, end: 20040119

REACTIONS (3)
  - DEHYDRATION [None]
  - HYPOTENSION [None]
  - TOXIC EPIDERMAL NECROLYSIS [None]
